FAERS Safety Report 14423637 (Version 1)
Quarter: 2018Q1

REPORT INFORMATION
  Report Type: Spontaneous
  Country: DE (occurrence: DE)
  Receive Date: 20180123
  Receipt Date: 20180123
  Transmission Date: 20180509
  Serious: Yes (Other)
  Sender: FDA-Public Use
  Company Number: DE-TEVA-2018-DE-846271

PATIENT
  Sex: Male

DRUGS (6)
  1. NEPRESOL (DIHYDRALAZINE SULFATE) [Concomitant]
     Active Substance: DIHYDRALAZINE SULFATE
  2. NOVAMINSULFON [Concomitant]
     Active Substance: METAMIZOLE
  3. ATORVASTATIN [Concomitant]
     Active Substance: ATORVASTATIN
  4. MONOPROST [Concomitant]
     Active Substance: LATANOPROST
     Dosage: SINCE AUTUMN 2017
     Dates: start: 2017
  5. OXAZEPAM-RATIOPHARM 10 MG TABLETTEN [Suspect]
     Active Substance: OXAZEPAM
     Route: 048
     Dates: start: 2002
  6. PARACETAMOL [Concomitant]
     Active Substance: ACETAMINOPHEN

REACTIONS (2)
  - Contraindication to medical treatment [Unknown]
  - Ocular hypertension [Unknown]
